FAERS Safety Report 9838722 (Version 1)
Quarter: 2013Q4

REPORT INFORMATION
  Report Type: Spontaneous
  Country: US (occurrence: None)
  Receive Date: 20131206
  Receipt Date: 20131206
  Transmission Date: 20140711
  Serious: Yes (Other)
  Sender: FDA-Public Use
  Company Number: 379910

PATIENT
  Age: 47 Year
  Sex: Female

DRUGS (27)
  1. NOVOLOG [Suspect]
     Indication: DIABETES MELLITUS
     Route: 058
  2. LEVEMIR [Suspect]
     Indication: DIABETES MELLITUS
     Route: 058
  3. VIIBRYD [Suspect]
     Indication: DEPRESSION
     Route: 048
     Dates: start: 2012, end: 2012
  4. LAMICTAL [Suspect]
     Indication: DEPRESSION
     Route: 048
  5. GABAPENTIN (GABAPENTIN) [Concomitant]
  6. TEGRETOL (CARBAMAZEPINE) [Concomitant]
  7. ENALAPRIL (ENALAPRIL) [Concomitant]
  8. DIAMOX (ACETAZOLAMIDE) [Concomitant]
  9. BOTOX (BOTULINUM TOXIN TYPE A) [Concomitant]
  10. ASPIRIN (ACETYLSALICYLIC ACID) [Concomitant]
  11. JANUVIA (SITAGLIPTIN PHOSPHATE) [Concomitant]
  12. METFORMIN (METFORMIN) [Concomitant]
  13. SIMVASTATIN (SIMVASTATIN) [Concomitant]
  14. TRICOR (ADENOSINE) [Concomitant]
  15. ZETIA (EZETIMIBE) [Concomitant]
  16. RITALIN (METHYLPHENIDATE HYDROCHLORIDE) [Concomitant]
  17. PRIVIGIL (MODAFINIL) [Concomitant]
  18. TOPAMAX (TOPIRAMATE) [Concomitant]
  19. WELLBUTRIN (BUPROPION HYDROCHLORIDE) [Concomitant]
  20. SPIRONOLACTONE (SPIRONOLACTONE) [Concomitant]
  21. BUMEX (BUMETANIDE) [Concomitant]
  22. ASMANEX (MOMETASONE FUROATE) [Concomitant]
  23. PROAIR (SALBUTAMOL SULFATE) [Concomitant]
  24. FLEXERIL (CYCLOBENZAPRINE HYDROCHLORIDE) [Concomitant]
  25. NEXIUM (ESOMEPRAZOLE MAGNESIUM) [Concomitant]
  26. NAMENDA (MEMANTINE HYDROCHLORIDE) [Concomitant]
  27. RAZADYNE (GALANTAMINE HYDROBROMIDE) [Concomitant]

REACTIONS (4)
  - Wrong drug administered [None]
  - Confusional state [None]
  - Accidental overdose [None]
  - Hypoglycaemia [None]
